FAERS Safety Report 5306370-4 (Version None)
Quarter: 2007Q2

REPORT INFORMATION
  Report Type: 
  Country: None (occurrence: None)
  Receive Date: 20070424
  Receipt Date: 20070418
  Transmission Date: 20071010
  Serious: Yes (Death, Other)
  Sender: FDA-Public Use
  Company Number: US-BAYER-200711016BWH

PATIENT
  Age: 90 Year
  Sex: Female

DRUGS (2)
  1. AVELOX [Suspect]
     Indication: INFLUENZA
     Dosage: TOTAL DAILY DOSE: 400 MG  UNIT DOSE: 400 MG
     Route: 048
     Dates: start: 20070220, end: 20070225
  2. CIPRO [Concomitant]
     Indication: URINARY TRACT INFECTION

REACTIONS (9)
  - APHASIA [None]
  - ASTHENIA [None]
  - CANDIDIASIS [None]
  - CONFUSIONAL STATE [None]
  - DEATH [None]
  - DYSPHAGIA [None]
  - TRANSIENT ISCHAEMIC ATTACK [None]
  - UNRESPONSIVE TO STIMULI [None]
  - VOMITING [None]
